FAERS Safety Report 18553759 (Version 3)
Quarter: 2021Q1

REPORT INFORMATION
  Report Type: Spontaneous
  Country: DE (occurrence: DE)
  Receive Date: 20201127
  Receipt Date: 20210128
  Transmission Date: 20210419
  Serious: No
  Sender: FDA-Public Use
  Company Number: DE-009507513-2011DEU015256

PATIENT
  Age: 15 Year
  Sex: Female
  Weight: 58 kg

DRUGS (2)
  1. NEXPLANON [Suspect]
     Active Substance: ETONOGESTREL
     Indication: CONTRACEPTION
     Dosage: ONE ROD
     Route: 059
     Dates: start: 20191129
  2. NICOTINE. [Concomitant]
     Active Substance: NICOTINE
     Dosage: UNK (REPORTED AS 10/D)

REACTIONS (2)
  - Menstrual disorder [Unknown]
  - Maternal exposure during pregnancy [Recovered/Resolved]

NARRATIVE: CASE EVENT DATE: 2020
